FAERS Safety Report 19193575 (Version 5)
Quarter: 2022Q1

REPORT INFORMATION
  Report Type: Spontaneous
  Country: SK (occurrence: SK)
  Receive Date: 20210429
  Receipt Date: 20220222
  Transmission Date: 20220423
  Serious: Yes (Death, Life-Threatening, Hospitalization, Other)
  Sender: FDA-Public Use
  Company Number: SK-GLENMARK PHARMACEUTICALS-2021GMK053018

PATIENT
  Age: 33 Year
  Sex: Female

DRUGS (13)
  1. LINEZOLID [Suspect]
     Active Substance: LINEZOLID
     Indication: Antibiotic therapy
     Dosage: UNK
     Route: 065
  2. FLUCONAZOLE [Suspect]
     Active Substance: FLUCONAZOLE
     Indication: Antifungal treatment
     Dosage: 400 MILLIGRAM, OD
     Route: 051
  3. FLUCONAZOLE [Suspect]
     Active Substance: FLUCONAZOLE
     Dosage: 200 MILLIGRAM, OD
     Route: 065
  4. ESTRADIOL [Suspect]
     Active Substance: ESTRADIOL
     Indication: Hormone therapy
     Dosage: 3 MILLIGRAM
     Route: 048
  5. ESTRADIOL [Suspect]
     Active Substance: ESTRADIOL
     Dosage: 6 MILLIGRAM, OD
     Route: 048
  6. PROGESTERONE [Suspect]
     Active Substance: PROGESTERONE
     Indication: Hormone therapy
     Dosage: 2 DOSAGE FORM
     Route: 067
  7. AZATHIOPRINE [Suspect]
     Active Substance: AZATHIOPRINE
     Indication: Colitis ulcerative
     Dosage: 25 MILLIGRAM, QD
     Route: 065
  8. AZATHIOPRINE [Suspect]
     Active Substance: AZATHIOPRINE
     Dosage: UNK
     Route: 065
  9. MESALAMINE [Concomitant]
     Active Substance: MESALAMINE
     Indication: Colitis ulcerative
     Dosage: UNK
     Route: 065
  10. DEXAMETHASONE [Concomitant]
     Active Substance: DEXAMETHASONE
     Indication: Product used for unknown indication
     Dosage: 4 MILLIGRAM
     Route: 065
  11. MOXIFLOXACIN [Concomitant]
     Active Substance: MOXIFLOXACIN
     Indication: Antibiotic therapy
     Dosage: UNK
     Route: 065
  12. MEROPENEM [Concomitant]
     Active Substance: MEROPENEM
     Indication: Antibiotic therapy
     Dosage: UNK
     Route: 065
  13. OXYGEN [Concomitant]
     Active Substance: OXYGEN
     Indication: Product used for unknown indication
     Dosage: UNK
     Route: 065

REACTIONS (26)
  - Myelosuppression [Fatal]
  - COVID-19 [Fatal]
  - Pneumonia [Fatal]
  - Hepatic failure [Fatal]
  - Hepatotoxicity [Fatal]
  - Multiple organ dysfunction syndrome [Fatal]
  - Drug-induced liver injury [Fatal]
  - Respiratory failure [Fatal]
  - Atrioventricular block second degree [Not Recovered/Not Resolved]
  - Acinetobacter infection [Not Recovered/Not Resolved]
  - Lymphopenia [Not Recovered/Not Resolved]
  - Hypotension [Not Recovered/Not Resolved]
  - Pleural effusion [Unknown]
  - Ascites [Unknown]
  - Mediastinal effusion [Unknown]
  - Hepatosplenomegaly [Unknown]
  - Dysbiosis [Unknown]
  - Pericardial effusion [Unknown]
  - Gastrointestinal oedema [Unknown]
  - Septic shock [Fatal]
  - Hydrothorax [Unknown]
  - Pancytopenia [Not Recovered/Not Resolved]
  - Candida infection [Not Recovered/Not Resolved]
  - Anaemia [Not Recovered/Not Resolved]
  - Thrombocytopenia [Not Recovered/Not Resolved]
  - Sinus tachycardia [Not Recovered/Not Resolved]
